FAERS Safety Report 6372893-2 (Version None)
Quarter: 2009Q3

REPORT INFORMATION
  Report Type: 
  Country: None (occurrence: None)
  Receive Date: 20090924
  Receipt Date: 20090424
  Transmission Date: 20100115
  Serious: Yes (Other)
  Sender: FDA-Public Use
  Company Number: US-ASTRAZENECA-2008UW26982

PATIENT
  Age: 47 Year
  Sex: Female
  Weight: 59 kg

DRUGS (5)
  1. SEROQUEL [Suspect]
     Indication: SLEEP DISORDER
     Route: 048
     Dates: start: 20051201, end: 20070801
  2. RISPERDAL [Concomitant]
     Dates: start: 20070823, end: 20070831
  3. ZYPREXA [Concomitant]
     Dates: start: 20060101
  4. TRAZODONE [Concomitant]
     Dates: start: 20070823, end: 20070827
  5. CYMBALTA [Concomitant]
     Dates: start: 20050101

REACTIONS (7)
  - DIABETES MELLITUS [None]
  - DIABETIC COMA [None]
  - DRUG WITHDRAWAL SYNDROME [None]
  - HYPERTENSION [None]
  - JOINT INJURY [None]
  - OBESITY [None]
  - RHABDOMYOLYSIS [None]
